FAERS Safety Report 7962073-9 (Version None)
Quarter: 2011Q4

REPORT INFORMATION
  Report Type: 
  Country: None (occurrence: None)
  Receive Date: 20111207
  Receipt Date: 20111128
  Transmission Date: 20120403
  Serious: Yes (Other)
  Sender: FDA-Public Use
  Company Number: US-PURDUE-USA-2011-0078734

PATIENT
  Age: 61 Year
  Sex: Male
  Weight: 106 kg

DRUGS (1)
  1. OXYCONTIN [Suspect]
     Indication: PAIN
     Dosage: 160 MG, TID
     Route: 048
     Dates: start: 19980101

REACTIONS (1)
  - ROTATOR CUFF REPAIR [None]
